FAERS Safety Report 4365469-X (Version None)
Quarter: 2004Q2

REPORT INFORMATION
  Report Type: 
  Country: None (occurrence: None)
  Receive Date: 20040526
  Receipt Date: 20040514
  Transmission Date: 20050107
  Serious: Yes (Hospitalization)
  Sender: FDA-Public Use
  Company Number: SE-JNJFOC-20040503471

PATIENT
  Age: 59 Year
  Sex: Female

DRUGS (2)
  1. REMINYL [Suspect]
     Route: 049
     Dates: start: 20030225
  2. REMINYL [Suspect]
     Route: 049
     Dates: start: 20030225

REACTIONS (3)
  - CARDIAC ARREST [None]
  - SICK SINUS SYNDROME [None]
  - SINUS ARREST [None]
